FAERS Safety Report 6163895-X (Version None)
Quarter: 2009Q2

REPORT INFORMATION
  Report Type: 
  Country: None (occurrence: None)
  Receive Date: 20090422
  Receipt Date: 20090414
  Transmission Date: 20091009
  Serious: Yes (Life-Threatening, Hospitalization, Disabling, Other)
  Sender: FDA-Public Use
  Company Number: US-MERCK-0902USA00775

PATIENT
  Age: 56 Year
  Sex: Male
  Weight: 89 kg

DRUGS (3)
  1. FOSAMAX PLUS D [Suspect]
     Indication: OSTEOPENIA
     Route: 048
     Dates: start: 20070516, end: 20080801
  2. CORTICOSTEROIDS (UNSPECIFIED) [Concomitant]
     Route: 065
  3. ASACOL [Concomitant]
     Route: 065

REACTIONS (26)
  - ARRHYTHMIA [None]
  - ARTHRALGIA [None]
  - ARTHRITIS [None]
  - ASTHENIA [None]
  - BLOOD PRESSURE INCREASED [None]
  - BONE PAIN [None]
  - CAROTID ARTERY OCCLUSION [None]
  - CLUBBING [None]
  - DYSPNOEA [None]
  - ELECTROCARDIOGRAM [None]
  - FALL [None]
  - HAEMOGLOBIN DECREASED [None]
  - INADEQUATE ANALGESIA [None]
  - MALABSORPTION [None]
  - MUSCLE SPASMS [None]
  - MUSCULAR WEAKNESS [None]
  - MYALGIA [None]
  - OBSTRUCTIVE AIRWAYS DISORDER [None]
  - OSTEONECROSIS [None]
  - PAIN [None]
  - SLEEP APNOEA SYNDROME [None]
  - TUBERCULOSIS [None]
  - URINARY RETENTION [None]
  - URINARY TRACT PAIN [None]
  - VENTRICULAR TACHYCARDIA [None]
  - WEIGHT DECREASED [None]
